FAERS Safety Report 10086111 (Version 1)
Quarter: 2014Q2

REPORT INFORMATION
  Report Type: Other
  Country: GB (occurrence: GB)
  Receive Date: 20140418
  Receipt Date: 20140418
  Transmission Date: 20141212
  Serious: Yes (Life-Threatening, Hospitalization)
  Sender: FDA-Public Use
  Company Number: GB-PERRIGO-14GB003873

PATIENT
  Sex: 0

DRUGS (8)
  1. DEXSOL 0.4MG/ML PL00427/0137 [Suspect]
     Indication: ANTIEMETIC SUPPORTIVE CARE
     Dosage: 8 MG, SINGLE
     Route: 048
     Dates: start: 20140213, end: 20140213
  2. DEXSOL 0.4MG/ML PL00427/0137 [Suspect]
     Indication: PREMEDICATION
     Dosage: 8 MG, UNK
     Route: 048
     Dates: start: 20140213
  3. GLUCOSE [Suspect]
     Indication: MEDICATION DILUTION
     Route: 042
     Dates: start: 20140213, end: 20140213
  4. GLUCOSE [Suspect]
     Dosage: UNK
     Route: 042
  5. ONDANSETRON [Suspect]
     Indication: ANTIEMETIC SUPPORTIVE CARE
     Dosage: 8 MG, SINGLE
     Route: 042
     Dates: start: 20140213
  6. ONDANSETRON [Suspect]
     Indication: PREMEDICATION
  7. OXALIPLATIN [Suspect]
     Indication: CHEMOTHERAPY
     Dosage: 220 MG, UNK
     Route: 042
     Dates: start: 20140213, end: 20140213
  8. OXALIPLATIN [Suspect]
     Indication: PRODUCT USED FOR UNKNOWN INDICATION
     Dosage: UNK
     Route: 042

REACTIONS (1)
  - Anaphylactic reaction [Recovered/Resolved]
